FAERS Safety Report 24807516 (Version 1)
Quarter: 2025Q1

REPORT INFORMATION
  Report Type: Report from Study
  Country: US (occurrence: US)
  Receive Date: 20250105
  Receipt Date: 20250105
  Transmission Date: 20250408
  Serious: Yes (Other)
  Sender: ARDELYX
  Company Number: US-ARDELYX-2024ARDX009180

PATIENT
  Sex: Female

DRUGS (1)
  1. IBSRELA [Suspect]
     Active Substance: TENAPANOR HYDROCHLORIDE
     Indication: Irritable bowel syndrome
     Route: 048

REACTIONS (2)
  - Choking [Unknown]
  - Illness [Unknown]
